FAERS Safety Report 23058226 (Version 2)
Quarter: 2023Q4

REPORT INFORMATION
  Report Type: Report from Study
  Country: TR (occurrence: None)
  Receive Date: 20231012
  Receipt Date: 20231016
  Transmission Date: 20240110
  Serious: Yes (Death)
  Sender: FDA-Public Use
  Company Number: 2023A230590

PATIENT
  Sex: Female
  Weight: 56 kg

DRUGS (1)
  1. DURVALUMAB [Suspect]
     Active Substance: DURVALUMAB
     Indication: HIV infection CDC Group IV subgroup D
     Dosage: DURVALUMAB-ROUTE:IV.-FREQUENCY:ONCE IN 21 DAYS-TOTAL DAILY DOSE 1500 MG-START DATE:08.06.2023-END...
     Route: 042
     Dates: start: 20230608, end: 20231002

REACTIONS (1)
  - Death [Fatal]

NARRATIVE: CASE EVENT DATE: 20231005
